FAERS Safety Report 9984966 (Version 1)
Quarter: 2014Q1

REPORT INFORMATION
  Report Type: Report from Study
  Country: US (occurrence: US)
  Receive Date: 20140307
  Receipt Date: 20140307
  Transmission Date: 20141002
  Serious: No
  Sender: FDA-Public Use
  Company Number: US-ABBVIE-14P-163-1186747-00

PATIENT
  Sex: Female

DRUGS (8)
  1. HUMIRA [Suspect]
     Indication: PSORIATIC ARTHROPATHY
     Dates: start: 20131203
  2. GABAPENTIN [Concomitant]
     Indication: DIABETIC NEUROPATHY
  3. XANAX [Concomitant]
     Indication: INSOMNIA
  4. METFORMIN [Concomitant]
     Indication: DIABETES MELLITUS
  5. FUROSEMIDE [Concomitant]
     Indication: FLUID OVERLOAD
  6. KLOR-CON [Concomitant]
     Indication: SUPPLEMENTATION THERAPY
  7. LEVOTHYROXINE [Concomitant]
     Indication: HYPOTHYROIDISM
  8. PERIODIC SPINAL INJECTION [Concomitant]
     Indication: INTERVERTEBRAL DISC DEGENERATION
     Route: 050

REACTIONS (3)
  - Red blood cell count increased [Not Recovered/Not Resolved]
  - Skin lesion [Not Recovered/Not Resolved]
  - Arthralgia [Not Recovered/Not Resolved]
